FAERS Safety Report 14508101 (Version 1)
Quarter: 2018Q1

REPORT INFORMATION
  Report Type: Report from Study
  Country: None (occurrence: BR)
  Receive Date: 20180208
  Receipt Date: 20180208
  Transmission Date: 20180509
  Serious: Yes (Other)
  Sender: FDA-Public Use
  Company Number: BR-ABBVIE-18K-020-2247865-00

PATIENT
  Age: 53 Year
  Sex: Female
  Weight: 65 kg

DRUGS (4)
  1. HUMIRA [Suspect]
     Active Substance: ADALIMUMAB
     Route: 058
     Dates: end: 20171220
  2. SIMVASTATIN. [Concomitant]
     Active Substance: SIMVASTATIN
     Indication: BLOOD TRIGLYCERIDES
  3. MESALAZINE [Concomitant]
     Active Substance: MESALAMINE
     Indication: CROHN^S DISEASE
  4. HUMIRA [Suspect]
     Active Substance: ADALIMUMAB
     Indication: CROHN^S DISEASE
     Dosage: LOADING DOSE
     Route: 058
     Dates: start: 20161110, end: 20161110

REACTIONS (10)
  - Uterine cancer [Not Recovered/Not Resolved]
  - Blister [Not Recovered/Not Resolved]
  - Back pain [Recovered/Resolved]
  - Gait disturbance [Unknown]
  - Gynaecological examination abnormal [Unknown]
  - Peripheral swelling [Recovered/Resolved]
  - Endometriosis [Not Recovered/Not Resolved]
  - Coccydynia [Recovered/Resolved]
  - Pain in extremity [Unknown]
  - Arthralgia [Recovered/Resolved]

NARRATIVE: CASE EVENT DATE: 201707
